FAERS Safety Report 10308898 (Version 2)
Quarter: 2014Q3

REPORT INFORMATION
  Report Type: Spontaneous
  Country: GB (occurrence: GB)
  Receive Date: 20140716
  Receipt Date: 20140722
  Transmission Date: 20150326
  Serious: Yes (Life-Threatening, Other)
  Sender: FDA-Public Use
  Company Number: PHHY2014GB086059

PATIENT
  Age: 40 Year
  Sex: Male

DRUGS (5)
  1. CLOZAPINE. [Suspect]
     Active Substance: CLOZAPINE
     Indication: SCHIZOPHRENIA, PARANOID TYPE
     Dosage: 300 MG, BID
  2. SIMVASTATIN. [Concomitant]
     Active Substance: SIMVASTATIN
     Indication: BLOOD CHOLESTEROL INCREASED
     Dosage: 20 MG, PER DAY
  3. CLOZAPINE. [Suspect]
     Active Substance: CLOZAPINE
     Dosage: UNK
  4. LAMOTRIGINE. [Concomitant]
     Active Substance: LAMOTRIGINE
     Dosage: 150 MG, BID
  5. PIRENZEPINE [Concomitant]
     Active Substance: PIRENZEPINE
     Dosage: 150 MG, QD

REACTIONS (12)
  - Chest pain [Recovering/Resolving]
  - Pleural effusion [Recovering/Resolving]
  - Respiratory distress [Recovering/Resolving]
  - Respiratory arrest [Recovering/Resolving]
  - General physical health deterioration [Recovering/Resolving]
  - Constipation [Recovering/Resolving]
  - Lung consolidation [Recovering/Resolving]
  - Pyrexia [Recovering/Resolving]
  - Abdominal pain [Recovering/Resolving]
  - Pneumonia [Recovering/Resolving]
  - Ileus paralytic [Recovering/Resolving]
  - Faecaloma [Recovering/Resolving]
